FAERS Safety Report 5759635-6 (Version None)
Quarter: 2008Q2

REPORT INFORMATION
  Report Type: 
  Country: None (occurrence: None)
  Receive Date: 20080605
  Receipt Date: 20080527
  Transmission Date: 20081010
  Serious: Yes (Death, Hospitalization)
  Sender: FDA-Public Use
  Company Number: ZA-TEVA-171646ISR

PATIENT
  Sex: Male
  Weight: 41 kg

DRUGS (9)
  1. FOLINIC ACID [Suspect]
     Indication: COLORECTAL CANCER METASTATIC
     Route: 042
     Dates: start: 20080317, end: 20080414
  2. FLUOROURACIL [Suspect]
     Indication: COLORECTAL CANCER METASTATIC
     Route: 042
     Dates: start: 20080317, end: 20080414
  3. FLUOROURACIL [Suspect]
     Route: 042
  4. IRINOTECAN HCL [Suspect]
     Indication: COLORECTAL CANCER METASTATIC
     Route: 042
     Dates: start: 20080317, end: 20080414
  5. SUNITINIB (BLINDED THERAPY) [Suspect]
     Indication: COLORECTAL CANCER METASTATIC
     Route: 048
     Dates: start: 20080317, end: 20080414
  6. ACETAMINOPHEN [Concomitant]
     Route: 048
     Dates: start: 20080102
  7. GRANISETRON HCL [Concomitant]
     Route: 042
     Dates: start: 20080317
  8. ATROPINE SULFATE [Concomitant]
     Route: 042
     Dates: start: 20080317
  9. LOPERAMIDE HCL [Concomitant]
     Route: 048
     Dates: start: 20080317

REACTIONS (2)
  - PANCYTOPENIA [None]
  - RECTAL HAEMORRHAGE [None]
